FAERS Safety Report 8857652 (Version 1)
Quarter: 2012Q4

REPORT INFORMATION
  Report Type: 
  Country: US (occurrence: US)
  Receive Date: 20121024
  Receipt Date: 20121024
  Transmission Date: 20130627
  Serious: No
  Sender: FDA-Public Use
  Company Number: US-ASTRAZENECA-2012SE78256

PATIENT
  Age: 85 Year
  Sex: Female
  Weight: 64.4 kg

DRUGS (3)
  1. ATACAND [Suspect]
     Indication: HYPERTENSION
     Route: 048
     Dates: start: 20121010
  2. ZETIA [Concomitant]
  3. XANAX [Concomitant]

REACTIONS (4)
  - Heat rash [Recovering/Resolving]
  - Nervousness [Recovering/Resolving]
  - Dry mouth [Recovering/Resolving]
  - Dizziness [Recovering/Resolving]
